FAERS Safety Report 25004633 (Version 1)
Quarter: 2025Q1

REPORT INFORMATION
  Report Type: Spontaneous
  Country: CN (occurrence: CN)
  Receive Date: 20250224
  Receipt Date: 20250224
  Transmission Date: 20250408
  Serious: Yes (Other)
  Sender: ROCHE
  Company Number: CN-ROCHE-10000209522

PATIENT
  Age: 8 Year
  Sex: Male

DRUGS (1)
  1. OSELTAMIVIR PHOSPHATE [Suspect]
     Active Substance: OSELTAMIVIR PHOSPHATE
     Indication: Upper respiratory tract infection
     Route: 048
     Dates: start: 20250116, end: 20250116

REACTIONS (5)
  - Abdominal pain [Recovering/Resolving]
  - Pallor [Recovering/Resolving]
  - Seizure [Recovering/Resolving]
  - Cold sweat [Recovering/Resolving]
  - Pain [Recovering/Resolving]

NARRATIVE: CASE EVENT DATE: 20250116
